FAERS Safety Report 4299259-3 (Version None)
Quarter: 2004Q1

REPORT INFORMATION
  Report Type: 
  Country: None (occurrence: None)
  Receive Date: 20040217
  Receipt Date: 20040206
  Transmission Date: 20041129
  Serious: Yes (Death)
  Sender: FDA-Public Use
  Company Number: US066096

PATIENT
  Age: 72 Year
  Sex: Male
  Weight: 84.4 kg

DRUGS (1)
  1. PROCRIT [Suspect]
     Indication: MYELODYSPLASTIC SYNDROME
     Dosage: 40000 U, 2 IN 1 WEEKS, SC
     Route: 058
     Dates: start: 20030101, end: 20030301

REACTIONS (1)
  - DEATH [None]
